FAERS Safety Report 10934531 (Version 3)
Quarter: 2017Q2

REPORT INFORMATION
  Report Type: Spontaneous
  Country: US (occurrence: US)
  Receive Date: 20150320
  Receipt Date: 20170629
  Transmission Date: 20170829
  Serious: No
  Sender: FDA-Public Use
  Company Number: US-PFIZER INC-2015100608

PATIENT
  Age: 49 Year
  Sex: Female

DRUGS (3)
  1. PRISTIQ EXTENDED-RELEASE [Suspect]
     Active Substance: DESVENLAFAXINE SUCCINATE
     Indication: DEPRESSION
     Dosage: 50 MG, 2X/DAY
     Route: 048
     Dates: start: 20120328
  2. CELEBREX [Suspect]
     Active Substance: CELECOXIB
     Indication: SYSTEMIC LUPUS ERYTHEMATOSUS
     Dosage: 200 MG, 2X/DAY
     Route: 048
     Dates: start: 20120328
  3. LYRICA [Suspect]
     Active Substance: PREGABALIN
     Dosage: 75 MG, 3X/DAY
     Route: 048
     Dates: start: 20111215

REACTIONS (2)
  - Product use in unapproved indication [Unknown]
  - Headache [Unknown]

NARRATIVE: CASE EVENT DATE: 20120328
